FAERS Safety Report 19836845 (Version 3)
Quarter: 2021Q4

REPORT INFORMATION
  Report Type: Spontaneous
  Country: FR (occurrence: FR)
  Receive Date: 20210916
  Receipt Date: 20211122
  Transmission Date: 20220303
  Serious: Yes (Other)
  Sender: FDA-Public Use
  Company Number: FR-CELLTRION INC.-2021FR012640

PATIENT

DRUGS (8)
  1. INFLIXIMAB [Suspect]
     Active Substance: INFLIXIMAB
     Indication: Chronic granulomatous disease
     Dosage: UNK (FIRST-LINE TREATMENT)
     Route: 041
  2. ADALIMUMAB [Suspect]
     Active Substance: ADALIMUMAB
     Indication: Chronic granulomatous disease
     Dosage: 24 MILLIGRAM/SQ. METER, Q2W (ADDITIONAL INFO: OFF LABEL USE)
     Route: 058
  3. AZATHIOPRINE [Suspect]
     Active Substance: AZATHIOPRINE
     Indication: Immunosuppressant drug therapy
     Dosage: UNK
     Route: 065
  4. AZATHIOPRINE [Suspect]
     Active Substance: AZATHIOPRINE
     Dosage: UNK
     Route: 065
  5. SULFAMETHOXAZOLE\TRIMETHOPRIM [Concomitant]
     Active Substance: SULFAMETHOXAZOLE\TRIMETHOPRIM
     Indication: Infection prophylaxis
     Route: 005
  6. COTRIMOXAZOLE [Concomitant]
     Active Substance: SULFAMETHOXAZOLE\TRIMETHOPRIM
     Indication: Infection prophylaxis
     Dosage: UNK
     Route: 065
  7. AZATHIOPRINE [Concomitant]
     Active Substance: AZATHIOPRINE
     Indication: Chronic granulomatous disease
     Dosage: UNK
     Route: 065
  8. REMICADE [Suspect]
     Active Substance: INFLIXIMAB
     Indication: Chronic granulomatous disease
     Dosage: DOSE OF 5 OR 10 MG/KG/INFUSION, USUALLY AT 0,2,AND 6 WEEKS, THEN EVERY 4 TO 8 WEEKS (ADDITIONAL INFO
     Route: 042

REACTIONS (3)
  - Pulmonary mucormycosis [Unknown]
  - Off label use [Unknown]
  - Therapeutic product effect incomplete [Unknown]
